FAERS Safety Report 24182276 (Version 1)
Quarter: 2024Q3

REPORT INFORMATION
  Report Type: Spontaneous
  Country: GB (occurrence: GB)
  Receive Date: 20240807
  Receipt Date: 20240807
  Transmission Date: 20241017
  Serious: Yes (Other)
  Sender: AUROBINDO
  Company Number: GB-MHRA-MIDB- f11ef8a9-db7d-492a-b14f-b47e07392e8e

PATIENT
  Age: 69 Year

DRUGS (26)
  1. AMOXICILLIN [Suspect]
     Active Substance: AMOXICILLIN
     Indication: Product used for unknown indication
     Dosage: 500 MILLIGRAM, 3 TIMES A DAY(PT STATES COURSE NOT COMPLETED -STOPPED)
     Route: 065
  2. CLARITHROMYCIN [Suspect]
     Active Substance: CLARITHROMYCIN
     Indication: Product used for unknown indication
     Dosage: 500 MILLIGRAM(OM + ON 6DAYS - PT STATES COURSE NOTCOMPLETED - STOPPED)
     Route: 065
  3. ATORVASTATIN [Concomitant]
     Active Substance: ATORVASTATIN
     Indication: Product used for unknown indication
     Dosage: 80 MILLIGRAM, ONCE A DAY(AT NIGHT - HELD - RAISED LFTS)
     Route: 065
  4. CALCIUM CARBONATE\CHOLECALCIFEROL [Concomitant]
     Active Substance: CALCIUM CARBONATE\CHOLECALCIFEROL
     Indication: Product used for unknown indication
     Dosage: 2 DOSAGE FORM(750 MG / 200 UNIT CAPLETS)
     Route: 065
  5. ALENDRONIC ACID [Concomitant]
     Active Substance: ALENDRONIC ACID
     Indication: Product used for unknown indication
     Dosage: 70 MILLIGRAM, EVERY WEEK(TO BE TAKEN ON THE SAME DAY EACH WEEK)
     Route: 065
  6. ASPIRIN [Concomitant]
     Active Substance: ASPIRIN
     Indication: Product used for unknown indication
     Dosage: 75 MILLIGRAM, ONCE A DAY(EACH MORNING)
     Route: 065
  7. ALLOPURINOL [Concomitant]
     Active Substance: ALLOPURINOL
     Indication: Product used for unknown indication
     Dosage: 100 MILLIGRAM, ONCE A DAY
     Route: 065
  8. BISOPROLOL [Concomitant]
     Active Substance: BISOPROLOL\BISOPROLOL FUMARATE
     Indication: Product used for unknown indication
     Dosage: 8.75 MILLIGRAM, ONCE A DAY(3.75MG TABLETS ONE TO BE TAKEN IN THE MORNING AND 5MG TABLETS ONE TO BE T
     Route: 065
  9. DAPAGLIFLOZIN [Concomitant]
     Active Substance: DAPAGLIFLOZIN
     Indication: Product used for unknown indication
     Dosage: 10 MILLIGRAM, ONCE A DAY(PT STATES NOT TAKING PRIOR TOADMISSION)
     Route: 065
  10. FUROSEMIDE [Concomitant]
     Active Substance: FUROSEMIDE
     Indication: Product used for unknown indication
     Dosage: 20 MILLIGRAM, ONCE A DAY(EACH MORNING, PT STATES STILL TAKING PRIOR TO ADMISSION)
     Route: 065
  11. FERROUS FUMARATE [Concomitant]
     Active Substance: FERROUS FUMARATE
     Indication: Product used for unknown indication
     Dosage: 210 MILLIGRAM, ONCE A DAY(PT STATES NOT TAKING PRIOR TOADMISSION)
     Route: 065
  12. NITROGLYCERIN [Concomitant]
     Active Substance: NITROGLYCERIN
     Indication: Product used for unknown indication
     Dosage: UNK(E 400MICROGRAMS/DOSE PUMP SUBLINGUAL SPRAY SPRAY ONE OR TWO DOSES UNDER TONGUE AND THEN CLOSE MO
     Route: 060
  13. GABAPENTIN [Concomitant]
     Active Substance: GABAPENTIN
     Indication: Product used for unknown indication
     Dosage: 300 MILLIGRAM, 3 TIMES A DAY
     Route: 065
  14. IPRATROPIUM BROMIDE [Concomitant]
     Active Substance: IPRATROPIUM BROMIDE\IPRATROPIUM BROMIDE ANHYDROUS
     Indication: Product used for unknown indication
     Dosage: 500 MICROGRAM, EVERY 6 HOURS (PT STATES WAS USING PRIOR TOADMISSION)
     Route: 065
  15. MAGNASPARTATE [Concomitant]
     Indication: Product used for unknown indication
     Dosage: 243 MILLIGRAM, ONCE A DAY
     Route: 065
  16. MIRTAZAPINE [Concomitant]
     Active Substance: MIRTAZAPINE
     Indication: Product used for unknown indication
     Dosage: 1 DOSAGE FORM, ONCE A DAY(AT NIGHT)
     Route: 065
  17. NACSYS [Concomitant]
     Indication: Product used for unknown indication
     Dosage: 600 MILLIGRAM, ONCE A DAY
     Route: 065
  18. PREDNISOLONE [Concomitant]
     Active Substance: PREDNISOLONE
     Indication: Product used for unknown indication
     Dosage: UNK(5MG TABLETS - 40MG OM FOR 5 DAYS THEN 35MG OM FOR 3 DAYS, THEN REDUCEBY 5MG EVERY 3 DAYS UNTIL 5
     Route: 065
  19. ACETAMINOPHEN [Concomitant]
     Active Substance: ACETAMINOPHEN
     Indication: Product used for unknown indication
     Dosage: UNK
     Route: 065
  20. OMEPRAZOLE [Concomitant]
     Active Substance: OMEPRAZOLE
     Indication: Product used for unknown indication
     Dosage: 40 MILLIGRAM, ONCE A DAY
     Route: 065
  21. QUININE SULFATE [Concomitant]
     Active Substance: QUININE SULFATE
     Indication: Product used for unknown indication
     Dosage: 300 MILLIGRAM, ONCE A DAY(AT NIGHT)
     Route: 065
  22. RAMIPRIL [Concomitant]
     Active Substance: RAMIPRIL
     Indication: Product used for unknown indication
     Dosage: 1.25 MILLIGRAM, ONCE A DAY
     Route: 065
  23. Simple calcio + vitamina d [Concomitant]
     Indication: Product used for unknown indication
     Dosage: 1 DOSAGE FORM, ONCE A DAY(AT NIGHT)
     Route: 065
  24. ALBUTEROL [Concomitant]
     Active Substance: ALBUTEROL
     Indication: Product used for unknown indication
     Dosage: 5 MILLIGRAM, EVERY 6 HOURS (- PT STATES WAS USING PRIOR TO ADMISSION)
     Route: 065
  25. BECLOMETHASONE DIPROPIONATE\FORMOTEROL FUMARATE\GLYCOPYRROLATE [Concomitant]
     Active Substance: BECLOMETHASONE DIPROPIONATE\FORMOTEROL FUMARATE\GLYCOPYRROLATE
     Indication: Product used for unknown indication
     Dosage: 2 DOSAGE FORM(87 / 5 / 9 MICROGRAMS / DOSE INHALER  )
  26. VENTOLIN [Concomitant]
     Active Substance: ALBUTEROL SULFATE
     Indication: Product used for unknown indication
     Dosage: UNK(100 MICROGRAMS / DOSE EVOHALER ONE OR TWO PUFFS TO BE INHALED UP TO FOURTIMES A DAY)

REACTIONS (1)
  - Liver injury [Unknown]
